FAERS Safety Report 10687702 (Version 1)
Quarter: 2014Q4

REPORT INFORMATION
  Report Type: Spontaneous
  Country: CN (occurrence: None)
  Receive Date: 20141230
  Receipt Date: 20141230
  Transmission Date: 20150529
  Serious: Yes (Other)
  Sender: FDA-Public Use
  Company Number: 2014SEB00075

PATIENT
  Age: 67 Year
  Sex: Female

DRUGS (2)
  1. MIACALCIN [Suspect]
     Active Substance: CALCITONIN SALMON
     Route: 030
  2. CALCIUM GLUCONATE. [Concomitant]
     Active Substance: CALCIUM GLUCONATE

REACTIONS (8)
  - Supraventricular extrasystoles [None]
  - Ventricular tachycardia [None]
  - Hot flush [None]
  - Erythema [None]
  - Abdominal pain [None]
  - Palpitations [None]
  - Eyelid oedema [None]
  - Faeces discoloured [None]
